FAERS Safety Report 14484046 (Version 1)
Quarter: 2018Q1

REPORT INFORMATION
  Report Type: Spontaneous
  Country: CN (occurrence: CN)
  Receive Date: 20180205
  Receipt Date: 20180205
  Transmission Date: 20180509
  Serious: Yes (Death, Other)
  Sender: FDA-Public Use
  Company Number: CN-CIPLA LTD.-2018CN02642

PATIENT

DRUGS (6)
  1. GEMCITABINE [Suspect]
     Active Substance: GEMCITABINE\GEMCITABINE HYDROCHLORIDE
     Indication: ANGIOCENTRIC LYMPHOMA
     Dosage: 1000 MG/M2 ON DAYS 1 AND 8 TWO CYCLES
     Route: 042
  2. GEMCITABINE [Suspect]
     Active Substance: GEMCITABINE\GEMCITABINE HYDROCHLORIDE
     Dosage: 1000 MG/M2 ON DAYS 1 AND 8 TWO CYCLES
     Route: 042
  3. PEGASPARGASE [Suspect]
     Active Substance: PEGASPARGASE
     Dosage: 2500 IU/M2, ON DAY 1 TWO CYCLES
     Route: 042
  4. PEGASPARGASE [Suspect]
     Active Substance: PEGASPARGASE
     Indication: ANGIOCENTRIC LYMPHOMA
     Dosage: 2500 IU/M2, ON DAY 1 TWO CYCLES
     Route: 030
  5. OXALIPLATIN. [Suspect]
     Active Substance: OXALIPLATIN
     Indication: ANGIOCENTRIC LYMPHOMA
     Dosage: 130 MG/M2, ON DAYS 1 AND 8 TWO CYCLES
     Route: 042
  6. OXALIPLATIN. [Suspect]
     Active Substance: OXALIPLATIN
     Dosage: 130 MG/M2, ON DAYS 1 AND 8 TWO CYCLES
     Route: 042

REACTIONS (4)
  - Skin lesion [Unknown]
  - Malignant neoplasm progression [Unknown]
  - Death [Fatal]
  - Metastases to skin [Unknown]
